FAERS Safety Report 4768138-7 (Version None)
Quarter: 2005Q3

REPORT INFORMATION
  Report Type: 
  Country: None (occurrence: None)
  Receive Date: 20050908
  Receipt Date: 20050616
  Transmission Date: 20060218
  Serious: Yes (Life-Threatening)
  Sender: FDA-Public Use
  Company Number: A03200501816

PATIENT
  Age: 44 Year
  Sex: Male

DRUGS (6)
  1. ELOXATIN [Suspect]
     Indication: COLON CANCER METASTATIC
     Dosage: 170 MG - OTHER INTRAVENOUS NOS
     Route: 042
     Dates: start: 20050601, end: 20050601
  2. FLUOROURACIL [Concomitant]
  3. LEUCOVORIN [Concomitant]
  4. ONDANSETRON HYDROCHLORIDE [Concomitant]
  5. DEXAMETHASONE [Concomitant]
  6. CIMETIDINE [Concomitant]

REACTIONS (2)
  - PRURITUS [None]
  - RESPIRATORY ARREST [None]
